FAERS Safety Report 24680815 (Version 1)
Quarter: 2024Q4

REPORT INFORMATION
  Report Type: Report from Study
  Country: US (occurrence: US)
  Receive Date: 20241129
  Receipt Date: 20241129
  Transmission Date: 20250114
  Serious: Yes (Other)
  Sender: BAUSCH AND LOMB
  Company Number: US-BAUSCH-BL-2024-017366

PATIENT
  Age: 70 Year
  Sex: Male

DRUGS (9)
  1. XIFAXAN [Suspect]
     Active Substance: RIFAXIMIN
     Indication: Product used for unknown indication
     Dosage: 1 MONTH 60 UNITS
     Route: 048
     Dates: start: 20220711
  2. FAMOTIDINE [Suspect]
     Active Substance: FAMOTIDINE
     Indication: Product used for unknown indication
     Dosage: 40MG TABLET 1 PO BID BEFORE BREAKFAST AND BEDTIME 1 MONTH 60 UNITS
     Route: 048
     Dates: start: 20241031
  3. AMLODIPINE BESYLATE [Suspect]
     Active Substance: AMLODIPINE BESYLATE
     Indication: Product used for unknown indication
     Route: 048
     Dates: start: 20220711
  4. BETHANECHOL CHLORIDE [Suspect]
     Active Substance: BETHANECHOL CHLORIDE
     Indication: Product used for unknown indication
     Dosage: BEDTIME, 1 MONTH 30 UNITS
     Route: 048
     Dates: start: 20241031
  5. LACTULOSE [Suspect]
     Active Substance: LACTULOSE
     Indication: Product used for unknown indication
     Dosage: 2 PO QID 30ML QID DESPENSE 1 MONTH SUPPLY 1 UNIT 1 UNIT
     Route: 048
     Dates: start: 20220817
  6. LACTULOSE [Suspect]
     Active Substance: LACTULOSE
     Dosage: 2 PO QID 30ML QID DESPENSE 1 MONTH SUPPLY 1 UNIT 1 UNIT
     Route: 048
     Dates: start: 20241031
  7. LISINOPRIL AND HYDROCHLOROTHIAZIDE [Suspect]
     Active Substance: HYDROCHLOROTHIAZIDE\LISINOPRIL
     Indication: Product used for unknown indication
     Dosage: LISINOPRIL/HYDROCHLOROTHIAZIDE 10MG-12.5MG
     Route: 048
     Dates: start: 20110613
  8. PROZAC [Suspect]
     Active Substance: FLUOXETINE HYDROCHLORIDE
     Indication: Product used for unknown indication
     Dosage: PULVULE
     Route: 048
     Dates: start: 20220711
  9. OMEPRAZOLE [Suspect]
     Active Substance: OMEPRAZOLE
     Indication: Product used for unknown indication
     Dosage: DELAYED-RELEASE CAPSULE, 1 MONT 30 UNITS
     Route: 048
     Dates: start: 20241031

REACTIONS (15)
  - Hepatic cirrhosis [Unknown]
  - Dementia [Unknown]
  - Dementia with Lewy bodies [Unknown]
  - Nephrolithiasis [Unknown]
  - Haematochezia [Unknown]
  - Haemorrhoids [Unknown]
  - Hiatus hernia [Unknown]
  - Cholelithiasis [Unknown]
  - Oesophagitis [Unknown]
  - Gastritis [Unknown]
  - Dysphagia [Unknown]
  - Odynophagia [Unknown]
  - Diarrhoea [Unknown]
  - Amnesia [Unknown]
  - Confusional state [Unknown]

NARRATIVE: CASE EVENT DATE: 20220718
